FAERS Safety Report 8477262-7 (Version None)
Quarter: 2012Q2

REPORT INFORMATION
  Report Type: 
  Country: None (occurrence: None)
  Receive Date: 20120622
  Receipt Date: 20120606
  Transmission Date: 20120825
  Serious: Yes (Hospitalization, Other)
  Sender: FDA-Public Use
  Company Number: JPI-P-021734

PATIENT
  Age: 68 Year
  Sex: Male
  Weight: 105.6881 kg

DRUGS (13)
  1. AMPHETAMINE, DEXTROAMPHETAMINE MIXED SALTS [Concomitant]
  2. TESTOSTERONE [Concomitant]
  3. FOLIC ACID [Concomitant]
  4. XYREM [Suspect]
     Indication: SLEEP APNOEA SYNDROME
     Dosage: ORAL
     Route: 048
     Dates: start: 20060801
  5. FAMOTIDINE [Concomitant]
  6. ATENOLOL [Concomitant]
  7. INFLIXIMAB [Concomitant]
  8. FIBER [Concomitant]
  9. ACETYLSALIYCLIC ACID [Concomitant]
  10. METHOTREXATE SODIUM [Concomitant]
  11. GLUCOSAMINE [Concomitant]
  12. CITALOPRAM HYDROBROMIDE [Concomitant]
  13. HYDROCODONE BITARTRATE AND ACETAMINOPHEN [Concomitant]

REACTIONS (3)
  - NERVE COMPRESSION [None]
  - LUMBAR RADICULOPATHY [None]
  - SCIATICA [None]
